FAERS Safety Report 9422828 (Version 2)
Quarter: 2013Q3

REPORT INFORMATION
  Report Type: Spontaneous
  Country: JP (occurrence: JP)
  Receive Date: 20130726
  Receipt Date: 20130807
  Transmission Date: 20140515
  Serious: Yes (Hospitalization)
  Sender: FDA-Public Use
  Company Number: JP-PFIZER INC-2013216449

PATIENT
  Age: 1 Month
  Sex: Female
  Weight: 4.5 kg

DRUGS (1)
  1. AMLODIN [Suspect]
     Dosage: 60 MG, SINGLE
     Route: 048

REACTIONS (4)
  - Accidental exposure to product by child [Recovered/Resolved]
  - Accidental overdose [Recovered/Resolved]
  - Shock [Recovered/Resolved]
  - Pulmonary oedema [Recovered/Resolved]
